FAERS Safety Report 9925038 (Version 1)
Quarter: 2014Q1

REPORT INFORMATION
  Report Type: Spontaneous
  Country: US (occurrence: None)
  Receive Date: 20140225
  Receipt Date: 20140225
  Transmission Date: 20141002
  Serious: Yes (Life-Threatening)
  Sender: FDA-Public Use
  Company Number: None

PATIENT
  Age: 39 Year
  Sex: Female
  Weight: 55.79 kg

DRUGS (1)
  1. NOVOLOG [Suspect]

REACTIONS (4)
  - Device failure [None]
  - Incorrect dose administered by device [None]
  - Blood glucose increased [None]
  - Device malfunction [None]
